FAERS Safety Report 13398416 (Version 4)
Quarter: 2017Q3

REPORT INFORMATION
  Report Type: Report from Study
  Country: US (occurrence: US)
  Receive Date: 20170403
  Receipt Date: 20170810
  Transmission Date: 20171127
  Serious: Yes (Hospitalization)
  Sender: FDA-Public Use
  Company Number: US-ACTELION-A-US2017-149726

PATIENT
  Age: 43 Year
  Sex: Male
  Weight: 87.53 kg

DRUGS (12)
  1. TRACLEER [Suspect]
     Active Substance: BOSENTAN
     Indication: PULMONARY HYPERTENSION
     Dosage: 125 MG, BID
     Route: 048
  2. DOCUSATE [Concomitant]
     Active Substance: DOCUSATE
     Dosage: 100 MG, Q12HRS
     Route: 048
  3. FAMOTIDINE. [Concomitant]
     Active Substance: FAMOTIDINE
     Dosage: 20 MG, QPM
     Route: 048
  4. FUROSEMIDE. [Concomitant]
     Active Substance: FUROSEMIDE
     Dosage: 80 MG, Q12HRS
     Route: 048
  5. HEPARIN [Concomitant]
     Active Substance: HEPARIN SODIUM
     Dosage: 5000 U, TID
     Route: 058
  6. VELETRI [Suspect]
     Active Substance: EPOPROSTENOL
     Indication: PULMONARY HYPERTENSION
     Dosage: 45 NG/KG, PER MIN
     Route: 042
  7. VELETRI [Suspect]
     Active Substance: EPOPROSTENOL
     Dosage: 9 MG, QD
     Route: 042
  8. SILDENAFIL CITRATE. [Concomitant]
     Active Substance: SILDENAFIL CITRATE
     Dosage: 20 MG, TID
     Route: 048
  9. FUROSEMIDE. [Concomitant]
     Active Substance: FUROSEMIDE
     Dosage: 80 MG
     Route: 042
  10. SPIRONOLACTONE. [Concomitant]
     Active Substance: SPIRONOLACTONE
     Dosage: 100 MG, Q12HRS
     Route: 048
  11. GABAPENTIN. [Concomitant]
     Active Substance: GABAPENTIN
     Dosage: 600 MG, TID
     Route: 048
  12. VITAMIN B12 [Concomitant]
     Active Substance: CYANOCOBALAMIN
     Dosage: 1000 MCG, QD
     Route: 048

REACTIONS (26)
  - Constipation [Recovered/Resolved]
  - Renal cyst [Unknown]
  - Insomnia [Unknown]
  - Decreased appetite [Unknown]
  - Brain natriuretic peptide increased [Unknown]
  - Fatigue [Unknown]
  - Dyspnoea [Unknown]
  - Rash generalised [Unknown]
  - Abdominal distension [Unknown]
  - Catheter site pain [Recovered/Resolved]
  - Abdominal pain upper [Recovered/Resolved]
  - Pain in jaw [Unknown]
  - Hyponatraemia [Unknown]
  - Flushing [Unknown]
  - Anaemia [Unknown]
  - Cholelithiasis [Unknown]
  - Dyspnoea exertional [Unknown]
  - Muscle spasms [Unknown]
  - Fluid overload [Unknown]
  - Catheter site induration [Recovered/Resolved]
  - Weight decreased [Unknown]
  - Catheter site mass [Recovered/Resolved]
  - Arthropathy [Unknown]
  - Neck pain [Unknown]
  - Catheter site discolouration [Unknown]
  - Dizziness postural [Unknown]
